FAERS Safety Report 4374615-3 (Version None)
Quarter: 2004Q2

REPORT INFORMATION
  Report Type: 
  Country: None (occurrence: None)
  Receive Date: 20040602
  Receipt Date: 20040210
  Transmission Date: 20050107
  Serious: No
  Sender: FDA-Public Use
  Company Number: 200412476BWH

PATIENT
  Age: 84 Year
  Sex: Male
  Weight: 78.9259 kg

DRUGS (10)
  1. LEVITRA [Suspect]
     Indication: ERECTILE DYSFUNCTION
     Dosage: SEE IMAGE
     Route: 048
     Dates: start: 20040101
  2. LEVITRA [Suspect]
     Indication: ERECTILE DYSFUNCTION
     Dosage: SEE IMAGE
     Route: 048
     Dates: start: 20040201
  3. DILTIAZEM CL [Concomitant]
  4. LEVOTHROID [Concomitant]
  5. LIPITOR [Concomitant]
  6. TERAZOSIN HCL [Concomitant]
  7. KETAMINE HCL [Concomitant]
  8. VALIUM [Concomitant]
  9. DEMEROL [Concomitant]
  10. CLEOCIN [Concomitant]

REACTIONS (4)
  - BALANCE DISORDER [None]
  - DIZZINESS [None]
  - ERECTILE DYSFUNCTION [None]
  - HEADACHE [None]
